FAERS Safety Report 6110192-4 (Version None)
Quarter: 2009Q1

REPORT INFORMATION
  Report Type: 
  Country: None (occurrence: None)
  Receive Date: 20090309
  Receipt Date: 20090309
  Transmission Date: 20090719
  Serious: Yes (Life-Threatening, Hospitalization)
  Sender: FDA-Public Use
  Company Number: None

PATIENT
  Sex: Male
  Weight: 67.2 kg

DRUGS (14)
  1. SIROLIMUS [Suspect]
     Indication: IMMUNOSUPPRESSION
     Dosage: 1 MG QD PO
     Route: 048
     Dates: start: 20030103, end: 20051101
  2. SIROLIMUS [Suspect]
     Indication: LUNG TRANSPLANT
     Dosage: 1 MG QD PO
     Route: 048
     Dates: start: 20030103, end: 20051101
  3. PROGRAF [Concomitant]
  4. PREDNISONE [Concomitant]
  5. BACTRIM DS [Concomitant]
  6. BUSPAR [Concomitant]
  7. CALCIUM W/ VIT D [Concomitant]
  8. CARDIZEM [Concomitant]
  9. ECOTRIN FOLIC ACID [Concomitant]
  10. FOSAMAX [Concomitant]
  11. M.V.I. [Concomitant]
  12. ZOLOFT [Concomitant]
  13. FLOVENT [Concomitant]
  14. AZITHROMYCIN [Concomitant]

REACTIONS (1)
  - PULMONARY EMBOLISM [None]
